FAERS Safety Report 21371692 (Version 1)
Quarter: 2022Q3

REPORT INFORMATION
  Report Type: Spontaneous
  Country: GB (occurrence: GB)
  Receive Date: 20220923
  Receipt Date: 20220923
  Transmission Date: 20221026
  Serious: Yes (Hospitalization, Other)
  Sender: FDA-Public Use
  Company Number: GB-ROCHE-1636865

PATIENT
  Age: 65 Year
  Sex: Female

DRUGS (14)
  1. BIMATOPROST [Suspect]
     Active Substance: BIMATOPROST
     Indication: Glaucoma
     Dosage: 1 DOSAGE FORMS DAILY;
     Route: 047
     Dates: start: 201208, end: 20151206
  2. BIMATOPROST [Suspect]
     Active Substance: BIMATOPROST
     Dosage: BRUSH APPLICATOR
     Route: 065
  3. DOCETAXEL [Suspect]
     Active Substance: DOCETAXEL
     Indication: Breast cancer metastatic
     Dosage: 120 MG, Q3W, DURATION : 22 DAYS
     Route: 042
     Dates: start: 20150317, end: 20150407
  4. PERTUZUMAB [Suspect]
     Active Substance: PERTUZUMAB
     Indication: Breast cancer metastatic
     Dosage: 840 MG, UNK (LOADING DOSE)
     Route: 042
  5. PERTUZUMAB [Suspect]
     Active Substance: PERTUZUMAB
     Dosage: 840 MG (LOADING DOSE), DURATION : 1 DAY
     Route: 042
     Dates: start: 20150316, end: 20150316
  6. PERTUZUMAB [Suspect]
     Active Substance: PERTUZUMAB
     Dosage: 420 MG, TIW (MAINTENANCE DOSE), DURATION : 3 MONTHS
     Route: 042
     Dates: start: 20150407, end: 20150706
  7. TRASTUZUMAB [Suspect]
     Active Substance: TRASTUZUMAB
     Indication: Breast cancer metastatic
     Dosage: 472.5 MG, Q3W LOADING DOSE, DURATION : 1 DAY
     Route: 042
     Dates: start: 20150316, end: 20150316
  8. TRASTUZUMAB [Suspect]
     Active Substance: TRASTUZUMAB
     Dosage: 357 MG, TIW MAINTENANCE DOSE, DURATION : 91 DAYS
     Route: 042
     Dates: start: 20150407, end: 20150706
  9. ADO-TRASTUZUMAB EMTANSINE [Suspect]
     Active Substance: ADO-TRASTUZUMAB EMTANSINE
     Indication: Breast cancer metastatic
     Dosage: 210 MG, Q3W, DURATION : 74 DAYS
     Route: 042
     Dates: start: 20150814, end: 20151026
  10. COCODAMOL [Suspect]
     Active Substance: ACETAMINOPHEN\CODEINE PHOSPHATE
     Indication: Back pain
     Dosage: 4 OT, QD, DURATION : 2 MONTHS
     Route: 048
     Dates: start: 20150917, end: 201511
  11. COCODAMOL [Suspect]
     Active Substance: ACETAMINOPHEN\CODEINE PHOSPHATE
     Indication: Pain in extremity
     Dosage: 4 OT, QD (30/500MG), DURATION : 1 DAYS
     Route: 048
     Dates: start: 20151023, end: 20151023
  12. CALCIUM CARBONATE\CHOLECALCIFEROL [Concomitant]
     Active Substance: CALCIUM CARBONATE\CHOLECALCIFEROL
     Indication: Metastases to bone
     Dosage: 4 DOSAGE FORMS DAILY; 4 DOSAGE FORM, QD, DURATION : 1 MONTH
     Route: 048
     Dates: start: 20150917, end: 201510
  13. CALCIUM CARBONATE\CHOLECALCIFEROL [Concomitant]
     Active Substance: CALCIUM CARBONATE\CHOLECALCIFEROL
     Dosage: 2 DOSAGE FORM, DURATION : 1 MONTH
     Route: 048
     Dates: start: 20150917, end: 201510
  14. BENZALKONIUM CHLORIDE\DIMETHICONE\HYDROCORTISONE\NYSTATIN [Concomitant]
     Active Substance: BENZALKONIUM CHLORIDE\DIMETHICONE\HYDROCORTISONE\NYSTATIN
     Indication: Product used for unknown indication
     Dosage: UNK
     Route: 065
     Dates: start: 20150721, end: 2015

REACTIONS (27)
  - Diarrhoea [Recovered/Resolved]
  - Constipation [Recovered/Resolved]
  - Mastitis [Recovered/Resolved with Sequelae]
  - Inflammatory carcinoma of the breast [Recovered/Resolved with Sequelae]
  - Breast haemorrhage [Recovered/Resolved with Sequelae]
  - Paget^s disease of nipple [Unknown]
  - Painful respiration [Recovered/Resolved with Sequelae]
  - Pain in extremity [Unknown]
  - Breast inflammation [Recovered/Resolved with Sequelae]
  - Constipation [Recovered/Resolved]
  - Lymphoedema [Unknown]
  - Anaemia [Recovered/Resolved]
  - Back pain [Recovered/Resolved with Sequelae]
  - Blister [Unknown]
  - Skin disorder [Recovered/Resolved with Sequelae]
  - Skin wound [Recovered/Resolved with Sequelae]
  - Fatigue [Unknown]
  - Fatigue [Recovered/Resolved with Sequelae]
  - Headache [Recovered/Resolved]
  - Breast pain [Recovered/Resolved with Sequelae]
  - Nausea [Unknown]
  - Pain [Unknown]
  - Pleural effusion [Recovered/Resolved with Sequelae]
  - Oropharyngeal pain [Recovered/Resolved]
  - Vomiting [Recovered/Resolved]
  - Vomiting [Recovered/Resolved]
  - Breast discharge [Not Recovered/Not Resolved]

NARRATIVE: CASE EVENT DATE: 20150703
